FAERS Safety Report 8471974-7 (Version None)
Quarter: 2012Q2

REPORT INFORMATION
  Report Type: 
  Country: None (occurrence: None)
  Receive Date: 20120627
  Receipt Date: 20120620
  Transmission Date: 20120825
  Serious: No
  Sender: FDA-Public Use
  Company Number: US-PFIZER INC-2012126335

PATIENT
  Sex: Female
  Weight: 55.782 kg

DRUGS (3)
  1. PLAVIX [Concomitant]
     Dosage: UNK
  2. PROTONIX [Suspect]
     Dosage: UNK
     Dates: start: 20111201
  3. LIPITOR [Suspect]
     Dosage: UNK
     Dates: start: 20111201

REACTIONS (1)
  - NO ADVERSE EVENT [None]
